FAERS Safety Report 19524478 (Version 1)
Quarter: 2021Q3

REPORT INFORMATION
  Report Type: Spontaneous
  Country: FR (occurrence: FR)
  Receive Date: 20210713
  Receipt Date: 20210713
  Transmission Date: 20211014
  Serious: Yes (Hospitalization, Other)
  Sender: FDA-Public Use
  Company Number: FR-ADVANZ PHARMA-MAPI_00012141

PATIENT

DRUGS (6)
  1. ZONEGRAN [Suspect]
     Active Substance: ZONISAMIDE
     Indication: EPILEPSY
     Dosage: 300 MG
     Route: 048
     Dates: start: 20120629, end: 20150928
  2. ZONEGRAN [Suspect]
     Active Substance: ZONISAMIDE
     Dosage: 400 MG
     Route: 048
     Dates: start: 201602
  3. LAMICTAL [Suspect]
     Active Substance: LAMOTRIGINE
     Indication: EPILEPSY
     Dosage: 300 MG
     Route: 048
     Dates: start: 1999, end: 20160424
  4. ZONEGRAN [Suspect]
     Active Substance: ZONISAMIDE
     Dosage: 300 MG
     Route: 048
     Dates: start: 20160129, end: 201602
  5. LAMICTAL [Suspect]
     Active Substance: LAMOTRIGINE
     Dosage: 400 MG
     Route: 048
     Dates: start: 20160425
  6. ZONEGRAN [Suspect]
     Active Substance: ZONISAMIDE
     Dosage: 200 MG
     Route: 048
     Dates: start: 20150929, end: 20160128

REACTIONS (2)
  - Seizure [Recovered/Resolved]
  - Exposure during pregnancy [Unknown]

NARRATIVE: CASE EVENT DATE: 201510
